FAERS Safety Report 8964958 (Version 2)
Quarter: 2013Q1

REPORT INFORMATION
  Report Type: Spontaneous
  Country: BE (occurrence: BE)
  Receive Date: 20121213
  Receipt Date: 20130110
  Transmission Date: 20140127
  Serious: Yes (Life-Threatening, Hospitalization, Other)
  Sender: FDA-Public Use
  Company Number: BE-ROCHE-1168225

PATIENT
  Age: 47 Year
  Sex: Male
  Weight: 112 kg

DRUGS (4)
  1. MABTHERA [Suspect]
     Indication: B-CELL LYMPHOMA
     Route: 042
     Dates: start: 20100727, end: 20101129
  2. MABTHERA [Suspect]
     Route: 042
     Dates: start: 20101221, end: 20120207
  3. MABTHERA [Suspect]
     Route: 042
     Dates: start: 20120207, end: 20120724
  4. MARCOUMAR [Concomitant]
     Indication: EMBOLISM
     Dosage: 3X3 MG, 4X1.5 MG
     Route: 048
     Dates: start: 2007, end: 20120925

REACTIONS (1)
  - Colitis [Recovered/Resolved]
